FAERS Safety Report 4928574-2 (Version None)
Quarter: 2006Q1

REPORT INFORMATION
  Report Type: 
  Country: None (occurrence: None)
  Receive Date: 20060223
  Receipt Date: 20060131
  Transmission Date: 20060701
  Serious: Yes (Disabling, Other)
  Sender: FDA-Public Use
  Company Number: US200602000356

PATIENT
  Age: 16 Year
  Sex: Male

DRUGS (1)
  1. PROZAC [Suspect]

REACTIONS (3)
  - APALLIC SYNDROME [None]
  - INJURY ASPHYXIATION [None]
  - SUICIDE ATTEMPT [None]
